FAERS Safety Report 23819742 (Version 2)
Quarter: 2024Q2

REPORT INFORMATION
  Report Type: Spontaneous
  Country: GB (occurrence: GB)
  Receive Date: 20240506
  Receipt Date: 20240514
  Transmission Date: 20240716
  Serious: Yes (Hospitalization, Other)
  Sender: FDA-Public Use
  Company Number: GB-MYLANLABS-2024M1034645

PATIENT
  Sex: Female

DRUGS (2)
  1. CLOZARIL [Suspect]
     Active Substance: CLOZAPINE
     Indication: Schizophrenia
     Dosage: UNK, BID (25 MILLIGRAM IN THE MORNING AND 75 MILLIGRAM IN THE EVENING, BID (TWICE DAILY))
     Route: 048
     Dates: start: 20220512, end: 20240404
  2. CLOZARIL [Suspect]
     Active Substance: CLOZAPINE
     Dosage: UNK
     Route: 048
     Dates: start: 20240415

REACTIONS (10)
  - Catatonia [Recovering/Resolving]
  - Abnormal behaviour [Recovering/Resolving]
  - Tremor [Recovering/Resolving]
  - Pulmonary embolism [Unknown]
  - Malignant catatonia [Recovering/Resolving]
  - Hypothermia [Recovering/Resolving]
  - Malaise [Unknown]
  - Therapy interrupted [Unknown]
  - Learning disability [Unknown]
  - Tachycardia [Recovering/Resolving]
